FAERS Safety Report 19139890 (Version 2)
Quarter: 2021Q3

REPORT INFORMATION
  Report Type: Spontaneous
  Country: US (occurrence: US)
  Receive Date: 20210415
  Receipt Date: 20210907
  Transmission Date: 20211014
  Serious: No
  Sender: FDA-Public Use
  Company Number: US-PFIZER INC-2021210728

PATIENT
  Age: 32 Year
  Sex: Male

DRUGS (2)
  1. GENOTROPIN [Suspect]
     Active Substance: SOMATROPIN
     Dosage: 0.4 MG, ALTERNATE DAY (0.2 MG ALTERNATING WITH 0.4 MG)
  2. GENOTROPIN [Suspect]
     Active Substance: SOMATROPIN
     Dosage: 0.2 MG, ALTERNATE DAY (0.2 MG ALTERNATING WITH 0.4 MG)

REACTIONS (3)
  - Device operational issue [Unknown]
  - Device mechanical issue [Unknown]
  - Drug dose omission by device [Unknown]
